FAERS Safety Report 18573425 (Version 2)
Quarter: 2020Q4

REPORT INFORMATION
  Report Type: Spontaneous
  Country: TN (occurrence: TN)
  Receive Date: 20201203
  Receipt Date: 20201209
  Transmission Date: 20210114
  Serious: Yes (Life-Threatening, Other)
  Sender: FDA-Public Use
  Company Number: TN-ACCORD-209622

PATIENT
  Age: 67 Year
  Sex: Male

DRUGS (5)
  1. BUMETANIDE. [Suspect]
     Active Substance: BUMETANIDE
     Indication: CHRONIC KIDNEY DISEASE
  2. FUROSEMIDE. [Suspect]
     Active Substance: FUROSEMIDE
     Indication: CHRONIC KIDNEY DISEASE
  3. NIFEDIPINE. [Concomitant]
     Active Substance: NIFEDIPINE
  4. CAPTOPRIL. [Concomitant]
     Active Substance: CAPTOPRIL
  5. ALLOPURINOL. [Concomitant]
     Active Substance: ALLOPURINOL
     Dosage: WAS WITHDRAWN AND REINTRODUCED

REACTIONS (1)
  - Drug reaction with eosinophilia and systemic symptoms [Recovered/Resolved]
